FAERS Safety Report 18532978 (Version 1)
Quarter: 2020Q4

REPORT INFORMATION
  Report Type: Spontaneous
  Country: NL (occurrence: NL)
  Receive Date: 20201123
  Receipt Date: 20201123
  Transmission Date: 20210114
  Serious: Yes (Hospitalization)
  Sender: FDA-Public Use
  Company Number: NL-ACCORD-208974

PATIENT
  Age: 62 Year
  Sex: Male
  Weight: 50 kg

DRUGS (2)
  1. TOFACITINIB [Suspect]
     Active Substance: TOFACITINIB
     Indication: PRODUCT USED FOR UNKNOWN INDICATION
     Dosage: 2D5MG,5 MG / BRAND NAME NOT SPECIFIED
     Dates: start: 20190603, end: 20200720
  2. METHOTREXATE. [Suspect]
     Active Substance: METHOTREXATE
     Indication: PRODUCT USED FOR UNKNOWN INDICATION
     Dosage: TABLET 2.5 MG / BRAND NAME NOT SPECIFIED,1X PER WEEK 15MG
     Dates: start: 2004, end: 20200720

REACTIONS (1)
  - Fungal infection [Recovered/Resolved]

NARRATIVE: CASE EVENT DATE: 20200701
